FAERS Safety Report 6084241-6 (Version None)
Quarter: 2009Q1

REPORT INFORMATION
  Report Type: 
  Country: None (occurrence: None)
  Receive Date: 20090219
  Receipt Date: 20090212
  Transmission Date: 20090719
  Serious: Yes (Hospitalization)
  Sender: FDA-Public Use
  Company Number: US-ELI_LILLY_AND_COMPANY-US200902003057

PATIENT
  Sex: Female

DRUGS (10)
  1. BYETTA [Suspect]
     Indication: TYPE 2 DIABETES MELLITUS
     Dosage: 5 UG, 2/D
     Route: 058
     Dates: start: 20060201, end: 20070201
  2. BYETTA [Suspect]
     Dosage: 10 UG, 2/D
     Route: 058
     Dates: start: 20070201, end: 20080901
  3. BYETTA [Suspect]
     Dosage: 5 UG, 2/D
     Route: 058
     Dates: start: 20080901
  4. AVANDIA [Concomitant]
     Indication: TYPE 2 DIABETES MELLITUS
  5. METFORMIN HCL [Concomitant]
     Indication: TYPE 2 DIABETES MELLITUS
     Dosage: 500 MG, UNK
  6. AMARYL [Concomitant]
     Indication: TYPE 2 DIABETES MELLITUS
  7. ZOCOR [Concomitant]
     Indication: BLOOD CHOLESTEROL INCREASED
  8. LEVOTHYROXINE                      /00068001/ [Concomitant]
     Indication: HYPOTHYROIDISM
  9. LISINOPRIL [Concomitant]
     Indication: HYPERTENSION
  10. OXYBUTIN [Concomitant]
     Indication: INCONTINENCE
     Route: 062

REACTIONS (6)
  - ARTHRALGIA [None]
  - ARTHRITIS [None]
  - BLISTER [None]
  - DEPRESSION [None]
  - HYPOAESTHESIA [None]
  - PRURITUS [None]
